FAERS Safety Report 11636324 (Version 1)
Quarter: 2015Q4

REPORT INFORMATION
  Report Type: Spontaneous
  Country: US (occurrence: US)
  Receive Date: 20151016
  Receipt Date: 20151016
  Transmission Date: 20160304
  Serious: No
  Sender: FDA-Public Use
  Company Number: US-ELI_LILLY_AND_COMPANY-US201509006555

PATIENT
  Age: 76 Year
  Sex: Male

DRUGS (4)
  1. CIALIS [Suspect]
     Active Substance: TADALAFIL
     Dosage: 5 MG, UNK
     Route: 065
     Dates: end: 20150910
  2. CIALIS [Suspect]
     Active Substance: TADALAFIL
     Indication: ERECTILE DYSFUNCTION
     Dosage: 10 MG, PRN
     Route: 065
  3. CIALIS [Suspect]
     Active Substance: TADALAFIL
     Indication: BENIGN PROSTATIC HYPERPLASIA
     Dosage: 20 MG, PRN
     Route: 065
  4. TRIMIX                             /07407301/ [Concomitant]
     Dosage: UNK, UNKNOWN
     Route: 065

REACTIONS (4)
  - Breast enlargement [Not Recovered/Not Resolved]
  - Breast pain [Not Recovered/Not Resolved]
  - Pain [Not Recovered/Not Resolved]
  - Nipple pain [Not Recovered/Not Resolved]
